FAERS Safety Report 6843988-1 (Version None)
Quarter: 2010Q3

REPORT INFORMATION
  Report Type: 
  Country: None (occurrence: None)
  Receive Date: 20100715
  Receipt Date: 20100706
  Transmission Date: 20110219
  Serious: Yes (Death)
  Sender: FDA-Public Use
  Company Number: BR-SANOFI-AVENTIS-2010SA040528

PATIENT

DRUGS (1)
  1. FLUDARABINE PHOSPHATE [Suspect]
     Route: 065

REACTIONS (1)
  - GRAFT VERSUS HOST DISEASE [None]
